FAERS Safety Report 8937021 (Version 1)
Quarter: 2012Q4

REPORT INFORMATION
  Report Type: 
  Country: IN (occurrence: IN)
  Receive Date: 20121130
  Receipt Date: 20121130
  Transmission Date: 20130627
  Serious: Yes (Death, Hospitalization)
  Sender: FDA-Public Use
  Company Number: IN-GE HEALTHCARE MEDICAL DIAGNOSTICS-OMPQ-NO-1211S-1246

PATIENT
  Age: 74 Year
  Sex: Male

DRUGS (3)
  1. OMNIPAQUE [Suspect]
     Indication: LUNG NEOPLASM MALIGNANT
     Route: 042
     Dates: start: 20121116, end: 20121116
  2. OMNIPAQUE [Suspect]
     Indication: DIAGNOSTIC PROCEDURE
  3. 18 FDG [Concomitant]

REACTIONS (3)
  - Myocardial infarction [Fatal]
  - Chills [Recovered/Resolved]
  - Tachycardia [Recovered/Resolved]
